FAERS Safety Report 7971820-1 (Version None)
Quarter: 2011Q4

REPORT INFORMATION
  Report Type: 
  Country: None (occurrence: None)
  Receive Date: 20111212
  Receipt Date: 20111129
  Transmission Date: 20120403
  Serious: Yes (Hospitalization)
  Sender: FDA-Public Use
  Company Number: US-ELI_LILLY_AND_COMPANY-US201108006084

PATIENT
  Age: 67 Year
  Sex: Female

DRUGS (2)
  1. FORTEO [Suspect]
     Dosage: UNK, UNKNOWN
     Route: 065
  2. FORTEO [Suspect]
     Indication: OSTEOPOROSIS
     Dosage: UNK, UNKNOWN
     Route: 065

REACTIONS (9)
  - BRONCHITIS [None]
  - BLISTER [None]
  - WRIST FRACTURE [None]
  - MALAISE [None]
  - FALL [None]
  - CELLULITIS [None]
  - PAIN IN EXTREMITY [None]
  - UPPER LIMB FRACTURE [None]
  - GAIT DISTURBANCE [None]
